FAERS Safety Report 5268706-2 (Version None)
Quarter: 2007Q1

REPORT INFORMATION
  Report Type: 
  Country: None (occurrence: None)
  Receive Date: 20061213
  Receipt Date: 20031006
  Transmission Date: 20070707
  Serious: Yes (Hospitalization)
  Sender: FDA-Public Use
  Company Number: 2003UW12827

PATIENT
  Age: 45 Year
  Sex: Female

DRUGS (7)
  1. IRESSA [Suspect]
     Indication: NON-SMALL CELL LUNG CANCER
     Dates: start: 20030201
  2. IRESSA [Suspect]
     Indication: NON-SMALL CELL LUNG CANCER
     Dosage: 750 MG DAILY PO
     Route: 048
     Dates: start: 20030913
  3. METHADONE HCL [Concomitant]
  4. NEURONTIN [Concomitant]
  5. DILAUDID [Concomitant]
  6. STEROIDS [Concomitant]
  7. ENEMAS [Concomitant]

REACTIONS (6)
  - ACNE [None]
  - DIARRHOEA [None]
  - DISEASE PROGRESSION [None]
  - INTENTIONAL OVERDOSE [None]
  - RASH [None]
  - THERAPEUTIC RESPONSE UNEXPECTED [None]
